FAERS Safety Report 10724405 (Version 1)
Quarter: 2015Q1

REPORT INFORMATION
  Report Type: Spontaneous
  Country: US (occurrence: None)
  Receive Date: 20150116
  Receipt Date: 20150116
  Transmission Date: 20150721
  Serious: Yes (Disabling)
  Sender: FDA-Public Use
  Company Number: None

PATIENT
  Age: 43 Year
  Sex: Female
  Weight: 60.33 kg

DRUGS (2)
  1. CIPROFLOXACIN 500MG CIPRO [Suspect]
     Active Substance: CIPROFLOXACIN
     Indication: FURUNCLE
     Dosage: 1 PILL TWICE DAILY TAKEN  BY MOUTH
     Route: 048
     Dates: start: 20110529, end: 20110605
  2. CIPROFLOXACIN 500MG CIPRO [Suspect]
     Active Substance: CIPROFLOXACIN
     Indication: STAPHYLOCOCCAL INFECTION
     Dosage: 1 PILL TWICE DAILY TAKEN  BY MOUTH
     Route: 048
     Dates: start: 20110529, end: 20110605

REACTIONS (21)
  - Memory impairment [None]
  - Irritable bowel syndrome [None]
  - Myalgia [None]
  - Rash [None]
  - Peripheral coldness [None]
  - No reaction on previous exposure to drug [None]
  - Movement disorder [None]
  - Dry eye [None]
  - Adverse drug reaction [None]
  - Head discomfort [None]
  - Arthralgia [None]
  - Dyspnoea [None]
  - Personality change [None]
  - Depression [None]
  - Neck pain [None]
  - Vision blurred [None]
  - Back pain [None]
  - Fibromyalgia [None]
  - Gastrointestinal pain [None]
  - Insomnia [None]
  - Mood swings [None]

NARRATIVE: CASE EVENT DATE: 20110529
